FAERS Safety Report 9471223 (Version 1)
Quarter: 2013Q3

REPORT INFORMATION
  Report Type: Spontaneous
  Country: US (occurrence: US)
  Receive Date: 20130822
  Receipt Date: 20130822
  Transmission Date: 20140515
  Serious: No
  Sender: FDA-Public Use
  Company Number: US-TARO-2013P1004594

PATIENT
  Age: 65 Year
  Sex: Male

DRUGS (1)
  1. LAMISIL [Suspect]
     Indication: TINEA PEDIS
     Route: 061
     Dates: start: 20130221, end: 20130227

REACTIONS (4)
  - Application site erythema [Recovered/Resolved]
  - Application site warmth [Recovered/Resolved]
  - Application site exfoliation [Recovered/Resolved]
  - Application site pruritus [Recovered/Resolved]
